FAERS Safety Report 18819999 (Version 4)
Quarter: 2021Q1

REPORT INFORMATION
  Report Type: Report from Study
  Country: AT (occurrence: AT)
  Receive Date: 20210202
  Receipt Date: 20210219
  Transmission Date: 20210419
  Serious: Yes (Hospitalization)
  Sender: FDA-Public Use
  Company Number: NVSC2021AT010942

PATIENT
  Age: 13 Year
  Sex: Male
  Weight: 49.8 kg

DRUGS (8)
  1. SACUBITRIL,VALSARTAN [Suspect]
     Active Substance: SACUBITRIL\VALSARTAN
     Indication: CARDIAC FAILURE
     Dosage: 1.6 MG/KG, BID
     Route: 048
     Dates: start: 20201014, end: 20210116
  2. THROMBO AS [Concomitant]
     Indication: THROMBOSIS PROPHYLAXIS
     Dosage: UNK
     Route: 065
     Dates: start: 20201216
  3. SACUBITRIL,VALSARTAN [Suspect]
     Active Substance: SACUBITRIL\VALSARTAN
     Indication: SYSTOLIC DYSFUNCTION
  4. CONCOR [Concomitant]
     Active Substance: BISOPROLOL FUMARATE
     Indication: CARDIAC FAILURE CHRONIC
     Dosage: UNK
     Route: 065
     Dates: start: 20201210
  5. SPIRONOLACTON [Concomitant]
     Active Substance: SPIRONOLACTONE
     Indication: CARDIAC FAILURE CHRONIC
     Dosage: UNK
     Route: 065
     Dates: start: 20201216
  6. NATRIUMCITRAT [Concomitant]
     Indication: HYPERGLYCINAEMIA
     Dosage: UNK
     Route: 065
     Dates: start: 20100806
  7. L?CARNITIN [Concomitant]
     Indication: HYPERGLYCINAEMIA
     Dosage: UNK
     Route: 065
     Dates: start: 20061222
  8. ADVIT [Concomitant]
     Indication: HYPERGLYCINAEMIA
     Dosage: UNK
     Route: 065
     Dates: start: 20080114

REACTIONS (4)
  - Hypotension [Not Recovered/Not Resolved]
  - Diarrhoea [Not Recovered/Not Resolved]
  - Vomiting [Not Recovered/Not Resolved]
  - Sepsis [Recovered/Resolved]

NARRATIVE: CASE EVENT DATE: 20210116
